FAERS Safety Report 8835930 (Version 1)
Quarter: 2012Q4

REPORT INFORMATION
  Report Type: 
  Country: US (occurrence: US)
  Receive Date: 20121011
  Receipt Date: 20121011
  Transmission Date: 20130627
  Serious: No
  Sender: FDA-Public Use
  Company Number: US-PFIZER INC-2012250548

PATIENT
  Age: 46 Year
  Sex: Female
  Weight: 57.6 kg

DRUGS (7)
  1. MECLOZINE HCL [Suspect]
     Indication: VERTIGO
     Dosage: 25 mg, daily, for a week
     Dates: start: 201209
  2. MECLOZINE HCL [Suspect]
     Dosage: 25 mg, 3x/day, for 2 weeks
     Dates: start: 2012
  3. MECLOZINE HCL [Suspect]
     Dosage: 50 mg, 3x/day, for 2 weeks
     Dates: start: 2012, end: 20121005
  4. XANAX [Suspect]
     Indication: ANXIETY
     Dosage: half tablet of 2 mg, every three hours
  5. MIRTAZAPINE [Concomitant]
     Indication: SLEEP DISORDER
     Dosage: 30 mg, daily
  6. METOPROLOL [Concomitant]
     Indication: BLOOD PRESSURE ABNORMAL
     Dosage: 2x/day
  7. VITAMIN B12 [Concomitant]
     Indication: SUPPLEMENTATION THERAPY
     Dosage: 1000 IU, daily

REACTIONS (2)
  - Headache [Unknown]
  - Decreased appetite [Unknown]
